FAERS Safety Report 5007907-5 (Version None)
Quarter: 2006Q2

REPORT INFORMATION
  Report Type: 
  Country: None (occurrence: None)
  Receive Date: 20060522
  Receipt Date: 20060512
  Transmission Date: 20061013
  Serious: Yes (Hospitalization)
  Sender: FDA-Public Use
  Company Number: FR-ABBOTT-06P-056-0333130-00

PATIENT
  Age: 35 Year
  Sex: Female

DRUGS (9)
  1. DEPAKENE [Suspect]
     Indication: EPILEPSY
     Route: 048
     Dates: start: 20050101, end: 20051019
  2. DEPAKENE [Suspect]
     Dates: end: 20040101
  3. ZOLPIDEM TARTRATE [Concomitant]
     Indication: DRUG USE FOR UNKNOWN INDICATION
     Route: 048
  4. METHYLDOPA [Concomitant]
     Indication: HYPERTENSION
     Route: 048
     Dates: end: 20051018
  5. METHYLDOPA [Concomitant]
  6. ACETAMINOPHEN W/ CODEINE [Concomitant]
     Indication: DRUG USE FOR UNKNOWN INDICATION
     Route: 048
  7. HYZAAR [Concomitant]
     Indication: HYPERTENSION
     Route: 048
     Dates: end: 20051018
  8. HYZAAR [Concomitant]
  9. CLOBAZAM [Concomitant]
     Indication: EPILEPSY
     Route: 048

REACTIONS (7)
  - ABDOMINAL PAIN [None]
  - DIARRHOEA [None]
  - HYPERAMMONAEMIA [None]
  - HYPERTENSION [None]
  - MENTAL IMPAIRMENT [None]
  - VOMITING [None]
  - WHITE BLOOD CELL COUNT INCREASED [None]
